FAERS Safety Report 10007528 (Version 2)
Quarter: 2014Q1

REPORT INFORMATION
  Report Type: Spontaneous
  Country: US (occurrence: US)
  Receive Date: 20140313
  Receipt Date: 20140313
  Transmission Date: 20141002
  Serious: No
  Sender: FDA-Public Use
  Company Number: US-BRACCO-010045

PATIENT
  Sex: 0

DRUGS (1)
  1. GASTROGRAFIN [Suspect]
     Indication: DIAGNOSTIC PROCEDURE
     Route: 048

REACTIONS (2)
  - Drug ineffective [Unknown]
  - Product quality issue [Unknown]
